FAERS Safety Report 6142288-5 (Version None)
Quarter: 2009Q2

REPORT INFORMATION
  Report Type: 
  Country: None (occurrence: None)
  Receive Date: 20090402
  Receipt Date: 20090402
  Transmission Date: 20091009
  Serious: No
  Sender: FDA-Public Use
  Company Number: None

PATIENT
  Sex: Female
  Weight: 80.7403 kg

DRUGS (1)
  1. ESTRADIOL [Suspect]
     Indication: MENOPAUSE
     Dosage: 1MG ONCE QD PO 2-3 MO
     Route: 048
     Dates: start: 19990101

REACTIONS (2)
  - ABDOMINAL DISTENSION [None]
  - FLUID RETENTION [None]
